FAERS Safety Report 24536784 (Version 2)
Quarter: 2025Q2

REPORT INFORMATION
  Report Type: Spontaneous
  Country: US (occurrence: US)
  Receive Date: 20241022
  Receipt Date: 20250510
  Transmission Date: 20250716
  Serious: No
  Sender: SANOFI AVENTIS
  Company Number: US-SA-2024SA301272

PATIENT
  Age: 67 Year
  Sex: Female
  Weight: 68.94 kg

DRUGS (1)
  1. DUPIXENT [Suspect]
     Active Substance: DUPILUMAB
     Indication: Dermatitis atopic
     Dosage: 300 MG, QOW
     Route: 058
     Dates: start: 2023

REACTIONS (5)
  - Malaise [Unknown]
  - Sensitivity to weather change [Unknown]
  - Pruritus [Unknown]
  - Eye pruritus [Unknown]
  - Product dose omission issue [Unknown]
